FAERS Safety Report 6827992-5 (Version None)
Quarter: 2010Q3

REPORT INFORMATION
  Report Type: 
  Country: None (occurrence: None)
  Receive Date: 20100709
  Receipt Date: 20100629
  Transmission Date: 20110219
  Serious: Yes (Hospitalization)
  Sender: FDA-Public Use
  Company Number: A0869134A

PATIENT
  Age: 30 Year
  Sex: Male

DRUGS (5)
  1. LAMICTAL [Suspect]
     Indication: PRODUCT USED FOR UNKNOWN INDICATION
     Route: 048
  2. EFFEXOR [Suspect]
     Indication: DEPRESSION
     Dosage: 225MG PER DAY
     Route: 048
     Dates: start: 20040101
  3. ZYPREXA [Suspect]
     Dosage: 20MG PER DAY
     Route: 048
  4. TRILEPTAL [Concomitant]
  5. VITAMIN B-12 [Concomitant]

REACTIONS (19)
  - AGGRESSION [None]
  - AGITATION [None]
  - ANGER [None]
  - DRUG INEFFECTIVE [None]
  - DYSPNOEA EXERTIONAL [None]
  - EYE DISORDER [None]
  - FEELING ABNORMAL [None]
  - HYPOAESTHESIA [None]
  - HYPOTHYROIDISM [None]
  - INSOMNIA [None]
  - IRRITABILITY [None]
  - LOGORRHOEA [None]
  - MANIA [None]
  - MOOD ALTERED [None]
  - MUSCLE TIGHTNESS [None]
  - NERVOUSNESS [None]
  - PSYCHOMOTOR HYPERACTIVITY [None]
  - SCHIZOPHRENIA [None]
  - WEIGHT INCREASED [None]
